FAERS Safety Report 25205648 (Version 1)
Quarter: 2025Q2

REPORT INFORMATION
  Report Type: Spontaneous
  Country: US (occurrence: US)
  Receive Date: 20250417
  Receipt Date: 20250417
  Transmission Date: 20250717
  Serious: Yes (Life-Threatening, Hospitalization)
  Sender: ASPIRO PHARMA
  Company Number: US-ASPIRO-ASP2025US01823

PATIENT
  Age: 13 Year
  Sex: Male
  Weight: 85 kg

DRUGS (3)
  1. PROPOFOL [Suspect]
     Active Substance: PROPOFOL
     Indication: Intracranial pressure increased
     Route: 065
  2. PROPOFOL [Suspect]
     Active Substance: PROPOFOL
     Route: 065
  3. PENTOBARBITAL [Concomitant]
     Active Substance: PENTOBARBITAL
     Indication: Intracranial pressure increased
     Route: 065

REACTIONS (3)
  - Toxicity to various agents [Recovering/Resolving]
  - Propofol infusion syndrome [Recovering/Resolving]
  - Prescribed overdose [Unknown]
